FAERS Safety Report 6429804-0 (Version None)
Quarter: 2009Q4

REPORT INFORMATION
  Report Type: 
  Country: None (occurrence: None)
  Receive Date: 20091106
  Receipt Date: 20091030
  Transmission Date: 20100525
  Serious: Yes (Life-Threatening)
  Sender: FDA-Public Use
  Company Number: PHHY2009GB47583

PATIENT
  Sex: Female

DRUGS (2)
  1. DESERIL [Suspect]
     Dosage: 4 MG, UNK
     Route: 048
     Dates: start: 20051201, end: 20090701
  2. ZOMIG [Concomitant]
     Dosage: UNK

REACTIONS (3)
  - OEDEMA PERIPHERAL [None]
  - OESOPHAGEAL STENT INSERTION [None]
  - RETROPERITONEAL FIBROSIS [None]
